FAERS Safety Report 5443003-0 (Version None)
Quarter: 2007Q3

REPORT INFORMATION
  Report Type: 
  Country: None (occurrence: None)
  Receive Date: 20070905
  Receipt Date: 20070827
  Transmission Date: 20080115
  Serious: Yes (Hospitalization, Other)
  Sender: FDA-Public Use
  Company Number: PHNU2005DE01166

PATIENT
  Sex: Female
  Weight: 66 kg

DRUGS (13)
  1. AREDIA [Suspect]
     Indication: PLASMACYTOMA
     Dosage: 90 MG, ONCE/SINGLE
     Route: 042
     Dates: start: 20040501, end: 20040501
  2. ZOMETA [Suspect]
     Indication: PLASMACYTOMA
     Dosage: 4 MG, QMO
     Route: 042
     Dates: start: 20040701, end: 20041101
  3. ALDACTONE [Concomitant]
     Dosage: 50 MG/DAY
     Route: 065
  4. CALCIUM [Concomitant]
     Dosage: 1-0-1
     Route: 048
  5. OXYGESIC [Concomitant]
     Dosage: 1-0-1 DF/DAY
     Route: 065
  6. LASIX [Concomitant]
     Dosage: 1-0-0 QD
     Route: 065
  7. NOVODIGAL [Concomitant]
     Dosage: 1-0-0 QD
     Route: 065
  8. MOVICOL [Concomitant]
     Dosage: 1-3 DF/DAY
     Route: 065
  9. PANTOPRAZOLE SODIUM [Concomitant]
     Dosage: 40 MG/DAY
     Route: 065
  10. LOVENOX [Concomitant]
     Dosage: 40 MG, QD
     Route: 065
  11. MARCUMAR [Concomitant]
     Route: 065
  12. CALCITONIN-SALMON [Concomitant]
     Dosage: 1 DF, QD
  13. CAL-D-VITA [Concomitant]
     Dosage: 1 DF, BID
     Route: 065

REACTIONS (4)
  - ATRIAL FIBRILLATION [None]
  - JAW OPERATION [None]
  - OSTEOMYELITIS [None]
  - OSTEONECROSIS [None]
